FAERS Safety Report 6890456-7 (Version None)
Quarter: 2010Q3

REPORT INFORMATION
  Report Type: 
  Country: None (occurrence: None)
  Receive Date: 20100731
  Receipt Date: 20081029
  Transmission Date: 20110219
  Serious: No
  Sender: FDA-Public Use
  Company Number: US-PFIZER INC-2008091296

PATIENT
  Sex: Male
  Weight: 115 kg

DRUGS (3)
  1. LIPITOR [Suspect]
     Indication: BLOOD CHOLESTEROL INCREASED
     Dates: start: 20050101
  2. AZELAIC ACID [Concomitant]
  3. VISTARIL [Concomitant]

REACTIONS (3)
  - MYALGIA [None]
  - RENAL IMPAIRMENT [None]
  - WEIGHT DECREASED [None]
